FAERS Safety Report 9055085 (Version 1)
Quarter: 2013Q1

REPORT INFORMATION
  Report Type: Spontaneous
  Country: US (occurrence: US)
  Receive Date: 20130206
  Receipt Date: 20130206
  Transmission Date: 20140127
  Serious: No
  Sender: FDA-Public Use
  Company Number: US-009507513-1302USA000734

PATIENT
  Age: 70 None
  Sex: Female

DRUGS (1)
  1. COSOPT PF [Suspect]
     Indication: GLAUCOMA
     Dosage: UNK UNK, BID
     Route: 047
     Dates: start: 2012

REACTIONS (2)
  - Cough [Recovering/Resolving]
  - Product packaging quantity issue [Unknown]
